FAERS Safety Report 8550299-5 (Version None)
Quarter: 2012Q3

REPORT INFORMATION
  Report Type: 
  Country: None (occurrence: None)
  Receive Date: 20120730
  Receipt Date: 20120726
  Transmission Date: 20120928
  Serious: Yes (Hospitalization)
  Sender: FDA-Public Use
  Company Number: PHHY2012DE053626

PATIENT
  Sex: Female
  Weight: 77 kg

DRUGS (7)
  1. XELODA [Concomitant]
     Dosage: 1000 MG/M2, UNK
     Dates: start: 20101004, end: 20110506
  2. ZOLEDRONOC ACID [Suspect]
     Dosage: 4 MG, UNK
     Route: 042
     Dates: start: 20101122, end: 20101122
  3. ZOLEDRONOC ACID [Suspect]
     Dosage: 4 MG, UNK
     Route: 042
     Dates: start: 20110216, end: 20110216
  4. VINORELBINE [Concomitant]
     Dosage: 25 MG/M2, (DAY 1 AND 8)
     Dates: start: 20101004, end: 20110506
  5. ZOLEDRONOC ACID [Suspect]
     Dosage: 4 MG, UNK
     Route: 042
  6. ZOLEDRONOC ACID [Suspect]
     Indication: BONE DISORDER
     Dosage: 4 MG, UNK
     Route: 042
     Dates: start: 20100422, end: 20100422
  7. DOXORUBICIN HCL [Concomitant]
     Dosage: 35 MG, (DAY 1 AND 15)
     Dates: start: 20110531, end: 20110713

REACTIONS (7)
  - NEOPLASM PROGRESSION [None]
  - NEOPLASM MALIGNANT [None]
  - VENOUS THROMBOSIS LIMB [None]
  - INFECTION [None]
  - BONE MARROW TOXICITY [None]
  - PYREXIA [None]
  - PULMONARY EMBOLISM [None]
